FAERS Safety Report 20874528 (Version 2)
Quarter: 2022Q2

REPORT INFORMATION
  Report Type: Report from Study
  Country: US (occurrence: US)
  Receive Date: 20220525
  Receipt Date: 20220609
  Transmission Date: 20220720
  Serious: Yes (Death, Hospitalization, Other)
  Sender: FDA-Public Use
  Company Number: US-BRISTOL-MYERS SQUIBB COMPANY-2022-043942

PATIENT
  Age: 76 Year
  Sex: Male
  Weight: 99 kg

DRUGS (2)
  1. NIVOLUMAB [Suspect]
     Active Substance: NIVOLUMAB
     Indication: Malignant melanoma
     Dosage: LAST DOSE: 25-APR-2022
     Dates: start: 20220309
  2. IPILIMUMAB [Suspect]
     Active Substance: IPILIMUMAB
     Indication: Malignant melanoma
     Dosage: LAST DOSE: 25-APR-2022
     Dates: start: 20220309

REACTIONS (4)
  - Malignant neoplasm progression [Fatal]
  - Fall [Unknown]
  - Muscular weakness [Unknown]
  - COVID-19 [Unknown]

NARRATIVE: CASE EVENT DATE: 20220510
